FAERS Safety Report 18664245 (Version 2)
Quarter: 2021Q1

REPORT INFORMATION
  Report Type: Spontaneous
  Country: CN (occurrence: CN)
  Receive Date: 20201225
  Receipt Date: 20210206
  Transmission Date: 20210419
  Serious: No
  Sender: FDA-Public Use
  Company Number: CN-LUPIN PHARMACEUTICALS INC.-2020-08807

PATIENT
  Sex: Female

DRUGS (4)
  1. GLUCOSE [Suspect]
     Active Substance: DEXTROSE
     Indication: VEHICLE SOLUTION USE
     Dosage: MAGNESIUM SULFATE PUT INTO 10% OF 100 ML GLUCOSE INJECTION VIA IV DRIP
     Route: 042
  2. MISOPROSTOL. [Suspect]
     Active Substance: MISOPROSTOL
     Indication: GESTATIONAL HYPERTENSION
     Dosage: 200 MICROGRAM
     Route: 054
  3. MAGNESIUM SULFATE. [Suspect]
     Active Substance: MAGNESIUM SULFATE
     Indication: GESTATIONAL HYPERTENSION
     Dosage: INTO 10% OF 100 ML GLUCOSE INJECTION VIA IV DRIP
     Route: 042
  4. MISOPROSTOL. [Suspect]
     Active Substance: MISOPROSTOL
     Dosage: 200 MICROGRAM
     Route: 048

REACTIONS (3)
  - Pyrexia [Unknown]
  - Exposure during pregnancy [Unknown]
  - Off label use [Unknown]
